FAERS Safety Report 8407181-3 (Version None)
Quarter: 2012Q2

REPORT INFORMATION
  Report Type: 
  Country: None (occurrence: None)
  Receive Date: 20120604
  Receipt Date: 20120529
  Transmission Date: 20120825
  Serious: Yes (Hospitalization)
  Sender: FDA-Public Use
  Company Number: DE-ROCHE-1074237

PATIENT
  Age: 42 Year
  Weight: 84 kg

DRUGS (8)
  1. PEGASYS [Suspect]
     Route: 058
  2. COPEGUS [Suspect]
     Route: 048
  3. METHADONE HCL [Concomitant]
     Indication: DRUG ABUSE
     Route: 048
  4. KALETRA [Concomitant]
     Indication: HIV INFECTION
     Route: 048
  5. FLUCONAZOLE [Concomitant]
     Indication: ANTIFUNGAL PROPHYLAXIS
     Route: 048
  6. INVIRASE [Concomitant]
     Indication: HIV INFECTION
     Route: 048
  7. PEGASYS [Suspect]
     Indication: HEPATITIS C
     Route: 058
     Dates: start: 20090216
  8. COPEGUS [Suspect]
     Indication: HEPATITIS C
     Route: 048
     Dates: start: 20090216

REACTIONS (2)
  - HAEMOGLOBIN DECREASED [None]
  - DISTURBANCE IN ATTENTION [None]
